FAERS Safety Report 9388314 (Version 2)
Quarter: 2013Q3

REPORT INFORMATION
  Report Type: Report from Study
  Country: US (occurrence: US)
  Receive Date: 20130708
  Receipt Date: 20130722
  Transmission Date: 20140515
  Serious: Yes (Hospitalization, Other)
  Sender: FDA-Public Use
  Company Number: US-TEVA-416641USA

PATIENT
  Age: 77 Year
  Sex: Female

DRUGS (1)
  1. COPAXONE [Suspect]
     Indication: MULTIPLE SCLEROSIS
     Dates: start: 20130524, end: 20130604

REACTIONS (6)
  - Multiple sclerosis [Unknown]
  - Fall [Unknown]
  - Multiple sclerosis relapse [Recovering/Resolving]
  - Liver disorder [Recovered/Resolved]
  - Renal disorder [Recovered/Resolved]
  - Pneumonia [Unknown]
